FAERS Safety Report 4893480-9 (Version None)
Quarter: 2006Q1

REPORT INFORMATION
  Report Type: 
  Country: None (occurrence: None)
  Receive Date: 20060127
  Receipt Date: 20050706
  Transmission Date: 20060701
  Serious: No
  Sender: FDA-Public Use
  Company Number: US-BRISTOL-MYERS SQUIBB COMPANY-13026570

PATIENT
  Age: 40 Year
  Sex: Female
  Weight: 63 kg

DRUGS (7)
  1. KENALOG [Suspect]
     Indication: CYSTITIS INTERSTITIAL
     Dosage: 1 CC
     Route: 066
     Dates: start: 20040801
  2. NARCAN [Concomitant]
     Indication: CYSTITIS INTERSTITIAL
     Route: 066
     Dates: start: 20040801
  3. HEPARIN [Concomitant]
     Indication: CYSTITIS INTERSTITIAL
     Route: 066
     Dates: start: 20040801
  4. HYDROXYZINE [Concomitant]
     Dosage: AT BEDTIME
  5. UROCIT-K [Concomitant]
  6. HERBAL PREPARATION [Concomitant]
  7. FLAXSEED OIL [Concomitant]

REACTIONS (3)
  - BLADDER PAIN [None]
  - DIARRHOEA [None]
  - PELVIC PAIN [None]
